FAERS Safety Report 15139358 (Version 4)
Quarter: 2018Q4

REPORT INFORMATION
  Report Type: Report from Study
  Country: GB (occurrence: GB)
  Receive Date: 20180713
  Receipt Date: 20181116
  Transmission Date: 20190204
  Serious: Yes (Other)
  Sender: FDA-Public Use
  Company Number: PHHY2018GB041619

PATIENT
  Age: 57 Year
  Sex: Female

DRUGS (1)
  1. OMNITROPE [Suspect]
     Active Substance: SOMATROPIN
     Indication: PRODUCT USED FOR UNKNOWN INDICATION
     Dosage: 0.4 MG, UNK
     Route: 058
     Dates: start: 20170329

REACTIONS (6)
  - Wrong technique in device usage process [Unknown]
  - Device failure [Unknown]
  - Hypopituitarism [Not Recovered/Not Resolved]
  - Product dispensing error [Unknown]
  - Product administration error [Unknown]
  - Device breakage [Unknown]

NARRATIVE: CASE EVENT DATE: 20180728
